FAERS Safety Report 6520117-5 (Version None)
Quarter: 2009Q4

REPORT INFORMATION
  Report Type: 
  Country: None (occurrence: None)
  Receive Date: 20091229
  Receipt Date: 20091209
  Transmission Date: 20100525
  Serious: No
  Sender: FDA-Public Use
  Company Number: US-BAYER-200942299NA

PATIENT
  Age: 27 Year
  Sex: Female
  Weight: 94 kg

DRUGS (1)
  1. MIRENA [Suspect]
     Indication: CONTRACEPTION
     Dosage: CONTINUOUS
     Route: 015
     Dates: start: 20050825, end: 20091201

REACTIONS (14)
  - ACNE [None]
  - ALOPECIA [None]
  - DEPRESSION [None]
  - DYSPAREUNIA [None]
  - FLUID RETENTION [None]
  - FUNGAL INFECTION [None]
  - HEADACHE [None]
  - HYPERTENSION [None]
  - MIGRAINE [None]
  - MOOD SWINGS [None]
  - OVARIAN CYST [None]
  - PELVIC PAIN [None]
  - UTERINE CERVICAL PAIN [None]
  - WEIGHT INCREASED [None]
